FAERS Safety Report 13438819 (Version 1)
Quarter: 2017Q2

REPORT INFORMATION
  Report Type: Spontaneous
  Country: SE (occurrence: SE)
  Receive Date: 20170413
  Receipt Date: 20170413
  Transmission Date: 20170830
  Serious: Yes (Hospitalization)
  Sender: FDA-Public Use
  Company Number: SE-TEVA-757872ISR

PATIENT
  Age: 70 Year
  Sex: Male

DRUGS (4)
  1. METHOTREXATE. [Suspect]
     Active Substance: METHOTREXATE
  2. CISPLATIN. [Concomitant]
     Active Substance: CISPLATIN
  3. DOXORUBICIN [Suspect]
     Active Substance: DOXORUBICIN
  4. VINBLASTINE [Concomitant]
     Active Substance: VINBLASTINE

REACTIONS (3)
  - Cardiac failure [Unknown]
  - Fatigue [Unknown]
  - Tachycardia [Unknown]
